FAERS Safety Report 10272913 (Version 1)
Quarter: 2014Q2

REPORT INFORMATION
  Report Type: Spontaneous
  Country: US (occurrence: None)
  Receive Date: 20140630
  Receipt Date: 20140630
  Transmission Date: 20141212
  Serious: Yes (Other)
  Sender: FDA-Public Use
  Company Number: 2014US0206

PATIENT
  Sex: Male

DRUGS (1)
  1. ANAKINRA (ANAKINRA) [Suspect]
     Indication: HYPER IGD SYNDROME
     Dates: start: 200811, end: 200811

REACTIONS (3)
  - Renal failure acute [None]
  - Hypertension [None]
  - Convulsion [None]
